FAERS Safety Report 6538874-0 (Version None)
Quarter: 2010Q1

REPORT INFORMATION
  Report Type: 
  Country: None (occurrence: None)
  Receive Date: 20100115
  Receipt Date: 20100107
  Transmission Date: 20100710
  Serious: No
  Sender: FDA-Public Use
  Company Number: B0624800A

PATIENT

DRUGS (1)
  1. RELENZA [Suspect]
     Indication: INFLUENZA LIKE ILLNESS
     Dosage: 10MG TWICE PER DAY

REACTIONS (1)
  - DRUG EXPOSURE VIA BREAST MILK [None]
